FAERS Safety Report 7569186-4 (Version None)
Quarter: 2011Q2

REPORT INFORMATION
  Report Type: 
  Country: None (occurrence: None)
  Receive Date: 20110623
  Receipt Date: 20110610
  Transmission Date: 20111010
  Serious: Yes (Other)
  Sender: FDA-Public Use
  Company Number: PHFR2010GB01529

PATIENT
  Sex: Female

DRUGS (10)
  1. RABEPRAZOLE SODIUM [Concomitant]
     Indication: ABDOMINAL DISCOMFORT
     Dosage: 10 MG, UNK
     Route: 048
  2. MIRTAZAPINE [Concomitant]
     Indication: DEPRESSION
     Dosage: 30 MG, DAILY
     Route: 048
  3. DIAZEPAM [Concomitant]
     Indication: DEPRESSION
     Dosage: 5 TO 10 MG DAILY
     Route: 048
  4. CLOZAPINE [Suspect]
     Indication: SCHIZOPHRENIA
     Dosage: 500 MG, QD
     Route: 048
     Dates: start: 20051101
  5. HYOSCINE HYDROBROMIDE [Concomitant]
     Dosage: 1.2 MG, DAILY
     Route: 048
  6. CLOZAPINE [Suspect]
     Dosage: 400 MG, QD
     Route: 048
     Dates: end: 20101117
  7. VENLAFAXINE [Concomitant]
     Indication: DEPRESSION
     Dosage: 300 MG, DAILY
     Route: 048
  8. MIRTAZAPINE [Concomitant]
     Indication: ANXIETY
  9. VENLAFAXINE [Concomitant]
     Indication: ANXIETY
  10. DIAZEPAM [Concomitant]
     Indication: ANXIETY

REACTIONS (8)
  - SYSTEMIC LUPUS ERYTHEMATOSUS [None]
  - SCHIZOPHRENIA [None]
  - HALLUCINATION [None]
  - ORTHOSTATIC HYPOTENSION [None]
  - WEIGHT DECREASED [None]
  - SYNCOPE [None]
  - NEUTROPENIA [None]
  - WHITE BLOOD CELL COUNT DECREASED [None]
